FAERS Safety Report 7272535-8 (Version None)
Quarter: 2011Q1

REPORT INFORMATION
  Report Type: 
  Country: None (occurrence: None)
  Receive Date: 20110126
  Receipt Date: 20110111
  Transmission Date: 20110831
  Serious: Yes (Hospitalization, Other)
  Sender: FDA-Public Use
  Company Number: AUR-APL-2011-00190

PATIENT
  Sex: Male

DRUGS (1)
  1. SIMVASTATIN [Suspect]
     Dosage: 40MG-DAILY

REACTIONS (4)
  - HEPATITIS VIRAL [None]
  - SEPSIS [None]
  - MYOPATHY [None]
  - HEPATITIS ACUTE [None]
